FAERS Safety Report 24058243 (Version 1)
Quarter: 2024Q3

REPORT INFORMATION
  Report Type: Spontaneous
  Country: DE (occurrence: DE)
  Receive Date: 20240708
  Receipt Date: 20240708
  Transmission Date: 20241017
  Serious: Yes (Other)
  Sender: CELLTRION
  Company Number: DE-CELLTRION INC.-2024DE015878

PATIENT

DRUGS (9)
  1. BEVACIZUMAB [Suspect]
     Active Substance: BEVACIZUMAB
     Indication: Ovarian cancer
     Dosage: UNK
     Route: 065
     Dates: start: 202304, end: 202310
  2. CARBOPLATIN [Suspect]
     Active Substance: CARBOPLATIN
     Indication: Ovarian cancer
     Dosage: UNK
     Route: 065
     Dates: start: 202304, end: 202310
  3. OLAPARIB [Suspect]
     Active Substance: OLAPARIB
     Indication: Ovarian cancer
     Dosage: UNK
     Route: 065
     Dates: start: 202304, end: 202310
  4. PACLITAXEL [Suspect]
     Active Substance: PACLITAXEL
     Indication: Product used for unknown indication
     Dosage: UNK
     Route: 065
     Dates: start: 202304, end: 202310
  5. ALPHA LIPOIC ACID [Concomitant]
     Active Substance: .ALPHA.-LIPOIC ACID
     Indication: Nervous system disorder prophylaxis
     Dosage: UNK, 600 MG SHORT INFUSION 3 ? WEEKLY/45 MIN
     Route: 065
  6. COLIBIOGEN [ESCHERICHIA COLI] [Concomitant]
     Indication: Product used for unknown indication
     Dosage: UNK, 2 ? 1 TEASPOONS FOR MUCOSA PROTECTION
     Route: 065
  7. L-CARNITINE [LEVOCARNITINE HYDROCHLORIDE] [Concomitant]
     Indication: Nervous system disorder prophylaxis
     Dosage: 4 G SHORT INFUSION IN 250 ML NACL 0.9% DAILY/30 MIN
     Route: 065
  8. SODIUM SELENITE [Concomitant]
     Active Substance: SODIUM SELENITE
     Indication: Nervous system disorder prophylaxis
     Dosage: UNK, 300 ?G 1-0-0 DAILY
     Route: 065
  9. VITAMIN D NOS [Concomitant]
     Active Substance: CHOLECALCIFEROL\ERGOCALCIFEROL
     Indication: Nervous system disorder prophylaxis
     Dosage: UNK, 4,000 IU DAILY
     Route: 065

REACTIONS (1)
  - Neurotoxicity [Unknown]
